FAERS Safety Report 8660544 (Version 2)
Quarter: 2012Q4

REPORT INFORMATION
  Report Type: 
  Country: JP (occurrence: JP)
  Receive Date: 20120711
  Receipt Date: 20120831
  Transmission Date: 20130627
  Serious: Yes (Other)
  Sender: FDA-Public Use
  Company Number: JP-BRISTOL-MYERS SQUIBB COMPANY-16735573

PATIENT
  Age: 78 Year
  Sex: Male

DRUGS (7)
  1. ORENCIA FOR INJ 250 MG/VIAL [Suspect]
     Indication: RHEUMATOID ARTHRITIS
     Dosage: 16Jun,14Jul,11Aug,8Sep,6Oct,28Nov11-500mg
Dosage weight:58.0kg
     Route: 041
     Dates: start: 20110601
  2. CYTOTEC [Concomitant]
  3. PARIET [Concomitant]
  4. BONALON [Concomitant]
  5. TACROLIMUS [Concomitant]
     Indication: RHEUMATOID ARTHRITIS
  6. PREDNISOLONE [Concomitant]
     Indication: RHEUMATOID ARTHRITIS
     Route: 048
  7. CLINORIL [Concomitant]
     Indication: RHEUMATOID ARTHRITIS

REACTIONS (1)
  - Thrombosis [Recovering/Resolving]
